FAERS Safety Report 5491878-1 (Version None)
Quarter: 2007Q4

REPORT INFORMATION
  Report Type: 
  Country: None (occurrence: None)
  Receive Date: 20071018
  Receipt Date: 20071008
  Transmission Date: 20080405
  Serious: Yes (Other)
  Sender: FDA-Public Use
  Company Number: 2007SP007910

PATIENT
  Age: 35 Year
  Sex: Female

DRUGS (13)
  1. PEG-INTRON [Suspect]
     Indication: HEPATITIS C
     Dosage: 150 MCG; QW; SC
     Route: 058
     Dates: start: 20060501, end: 20061001
  2. REBETOL [Suspect]
     Indication: HEPATITIS C
     Dosage: 1000 MG; QD; PO
     Route: 048
     Dates: start: 20060501, end: 20061001
  3. VICODIN [Concomitant]
  4. VALTREX [Concomitant]
  5. ADVAIR DISKUS 100/50 [Concomitant]
  6. COUMADIN [Concomitant]
  7. LOVENOX [Concomitant]
  8. AMOXICILLIN [Concomitant]
  9. PHENERGAN HCL [Concomitant]
  10. MUCINEX [Concomitant]
  11. SUDAFED 12 HOUR [Concomitant]
  12. MACROBID [Concomitant]
  13. AMBIEN [Concomitant]

REACTIONS (10)
  - DRUG EXPOSURE BEFORE PREGNANCY [None]
  - INTRACARDIAC THROMBUS [None]
  - NASOPHARYNGITIS [None]
  - NAUSEA [None]
  - PREGNANCY [None]
  - PULMONARY THROMBOSIS [None]
  - SINUSITIS [None]
  - THROMBOSIS [None]
  - URINARY TRACT INFECTION [None]
  - VOMITING [None]
